FAERS Safety Report 10935776 (Version 1)
Quarter: 2015Q1

REPORT INFORMATION
  Report Type: Spontaneous
  Country: HN (occurrence: HN)
  Receive Date: 20150320
  Receipt Date: 20150320
  Transmission Date: 20150721
  Serious: Yes (Hospitalization)
  Sender: FDA-Public Use
  Company Number: HN-PFIZER INC-2015100425

PATIENT
  Age: 74 Year
  Sex: Male
  Weight: 168 kg

DRUGS (1)
  1. XELJANZ [Suspect]
     Active Substance: TOFACITINIB CITRATE
     Dosage: UNK, 1X/DAY
     Route: 048
     Dates: start: 20141218

REACTIONS (6)
  - Dehydration [Unknown]
  - Arthralgia [Unknown]
  - Pallor [Unknown]
  - Pyrexia [Unknown]
  - Decreased appetite [Unknown]
  - Pain in extremity [Unknown]
